FAERS Safety Report 5141106-1 (Version None)
Quarter: 2006Q4

REPORT INFORMATION
  Report Type: 
  Country: None (occurrence: None)
  Receive Date: 20061101
  Receipt Date: 20051102
  Transmission Date: 20070319
  Serious: Yes (Hospitalization, Other)
  Sender: FDA-Public Use
  Company Number: PHBS2005JP16269

PATIENT
  Age: 50 Year
  Sex: Male
  Weight: 68 kg

DRUGS (5)
  1. DIOVAN [Suspect]
     Dosage: 80 MG, QD
     Route: 048
     Dates: start: 20031111, end: 20051018
  2. BUFFERIN [Concomitant]
     Indication: CEREBRAL INFARCTION
     Dosage: 81 MG, QD
     Route: 048
     Dates: start: 20040323, end: 20050822
  3. PANALDINE [Concomitant]
     Indication: CEREBRAL INFARCTION
     Dosage: 200 MG, UNK
     Route: 048
     Dates: start: 20040420, end: 20050822
  4. HUMACART-N [Concomitant]
     Indication: DIABETES MELLITUS
     Dosage: 35 IU, TID
     Dates: start: 20020910, end: 20051006
  5. LASIX [Concomitant]
     Indication: OEDEMA
     Route: 048
     Dates: start: 20050614, end: 20051016

REACTIONS (7)
  - BLOOD CREATININE INCREASED [None]
  - BLOOD URINE PRESENT [None]
  - GLOMERULONEPHRITIS MEMBRANOUS [None]
  - KIDNEY ENLARGEMENT [None]
  - NEPHRITIS INTERSTITIAL [None]
  - OEDEMA PERIPHERAL [None]
  - PROTEINURIA [None]
